FAERS Safety Report 7896315-5 (Version None)
Quarter: 2011Q4

REPORT INFORMATION
  Report Type: 
  Country: None (occurrence: None)
  Receive Date: 20111104
  Receipt Date: 20111104
  Transmission Date: 20120403
  Serious: No
  Sender: FDA-Public Use
  Company Number: None

PATIENT
  Sex: Female
  Weight: 99.3 kg

DRUGS (1)
  1. FEMARA [Suspect]
     Indication: BREAST CANCER
     Dosage: FEMARA 2.5 MG/D PO
     Route: 048
     Dates: start: 20110719

REACTIONS (3)
  - ONYCHOCLASIS [None]
  - OEDEMA PERIPHERAL [None]
  - FATIGUE [None]
